FAERS Safety Report 5636845-X (Version None)
Quarter: 2008Q1

REPORT INFORMATION
  Report Type: 
  Country: None (occurrence: None)
  Receive Date: 20080225
  Receipt Date: 20080212
  Transmission Date: 20080703
  Serious: Yes (Hospitalization)
  Sender: FDA-Public Use
  Company Number: FR-JNJFOC-20080205363

PATIENT
  Age: 63 Year
  Sex: Female

DRUGS (4)
  1. IXPRIM [Suspect]
     Indication: BACK PAIN
     Dosage: 37.5/325MG
     Route: 048
  2. AVLOCARDYL [Suspect]
     Indication: HEADACHE
     Route: 048
  3. TARDYFERON [Concomitant]
     Route: 065
  4. BONIVA [Concomitant]
     Route: 065

REACTIONS (3)
  - CONFUSIONAL STATE [None]
  - HALLUCINATION, VISUAL [None]
  - HYPOGLYCAEMIA [None]
